FAERS Safety Report 6718402-7 (Version None)
Quarter: 2010Q2

REPORT INFORMATION
  Report Type: 
  Country: None (occurrence: None)
  Receive Date: 20100510
  Receipt Date: 20100426
  Transmission Date: 20101027
  Serious: Yes (Hospitalization)
  Sender: FDA-Public Use
  Company Number: IN-MYLANLABS-2010S1007132

PATIENT
  Age: 65 Year
  Sex: Female

DRUGS (12)
  1. CHLORPROMAZINE [Suspect]
     Indication: OVERDOSE
     Dosage: INGESTED IN A SINGLE DAY
     Route: 048
  2. CHLORPROMAZINE [Suspect]
     Indication: SCHIZOPHRENIA
     Dosage: INGESTED IN A SINGLE DAY
     Route: 048
  3. CHLORPROMAZINE [Suspect]
     Dosage: 100 MG/DAY
     Route: 048
  4. CHLORPROMAZINE [Suspect]
     Dosage: 100 MG/DAY
     Route: 048
  5. HALOPERIDOL [Suspect]
     Indication: OVERDOSE
     Dosage: INGESTED IN A SINGLE DAY
     Route: 048
  6. HALOPERIDOL [Suspect]
     Indication: SCHIZOPHRENIA
     Dosage: INGESTED IN A SINGLE DAY
     Route: 048
  7. HALOPERIDOL [Suspect]
     Dosage: 15 MG/DAY
     Route: 048
  8. HALOPERIDOL [Suspect]
     Dosage: 15 MG/DAY
     Route: 048
  9. TRIHEXYPHENIDYL HCL [Suspect]
     Indication: OVERDOSE
     Dosage: INGESTED IN A SINGLE DAY
     Route: 048
  10. TRIHEXYPHENIDYL HCL [Suspect]
     Indication: SCHIZOPHRENIA
     Dosage: INGESTED IN A SINGLE DAY
     Route: 048
  11. TRIHEXYPHENIDYL HCL [Suspect]
     Dosage: 6 MG/DAY
     Route: 048
  12. TRIHEXYPHENIDYL HCL [Suspect]
     Dosage: 6 MG/DAY
     Route: 048

REACTIONS (2)
  - MYOCARDITIS [None]
  - OVERDOSE [None]
